FAERS Safety Report 6168265-6 (Version None)
Quarter: 2009Q2

REPORT INFORMATION
  Report Type: 
  Country: None (occurrence: None)
  Receive Date: 20090427
  Receipt Date: 20090407
  Transmission Date: 20091009
  Serious: Yes (Hospitalization)
  Sender: FDA-Public Use
  Company Number: JP-ASTRAZENECA-2009SE01488

PATIENT
  Sex: Female

DRUGS (2)
  1. KENZEN 8 MG [Suspect]
     Indication: HYPERTENSION
     Route: 048
     Dates: end: 20090212
  2. ATACAND [Suspect]
     Indication: HYPERTENSION
     Route: 048
     Dates: start: 20090212, end: 20090217

REACTIONS (3)
  - COGNITIVE DISORDER [None]
  - HYPONATRAEMIA [None]
  - PSYCHOMOTOR SKILLS IMPAIRED [None]
